FAERS Safety Report 25927333 (Version 1)
Quarter: 2025Q4

REPORT INFORMATION
  Report Type: Spontaneous
  Country: CN (occurrence: CN)
  Receive Date: 20251015
  Receipt Date: 20251015
  Transmission Date: 20260117
  Serious: Yes (Hospitalization, Other)
  Sender: ROCHE
  Company Number: CN-ROCHE-10000408282

PATIENT
  Age: 55 Year
  Sex: Female

DRUGS (5)
  1. OBINUTUZUMAB [Suspect]
     Active Substance: OBINUTUZUMAB
     Indication: Non-Hodgkin^s lymphoma
     Route: 042
     Dates: start: 20250820, end: 20250820
  2. CYCLOPHOSPHAMIDE [Concomitant]
     Active Substance: CYCLOPHOSPHAMIDE
     Indication: Non-Hodgkin^s lymphoma
     Route: 042
     Dates: start: 20250820, end: 20250821
  3. VINCRISTINE SULFATE [Concomitant]
     Active Substance: VINCRISTINE SULFATE
     Indication: Non-Hodgkin^s lymphoma
     Route: 042
     Dates: start: 20250821, end: 20250821
  4. EPIRUBICIN HYDROCHLORIDE [Concomitant]
     Active Substance: EPIRUBICIN HYDROCHLORIDE
     Indication: Non-Hodgkin^s lymphoma
     Route: 042
     Dates: start: 20250821, end: 20250821
  5. PREDNISONE ACETATE [Concomitant]
     Active Substance: PREDNISONE ACETATE
     Indication: Non-Hodgkin^s lymphoma
     Route: 048
     Dates: start: 20250820, end: 20250824

REACTIONS (5)
  - Myelosuppression [Recovering/Resolving]
  - Infection [Recovering/Resolving]
  - Pyrexia [Recovering/Resolving]
  - Oropharyngeal discomfort [Unknown]
  - Peritonitis [Recovering/Resolving]

NARRATIVE: CASE EVENT DATE: 20250826
